FAERS Safety Report 5459794-9 (Version None)
Quarter: 2007Q3

REPORT INFORMATION
  Report Type: 
  Country: None (occurrence: None)
  Receive Date: 20070919
  Receipt Date: 20070912
  Transmission Date: 20080115
  Serious: Yes (Hospitalization)
  Sender: FDA-Public Use
  Company Number: US-MERCK-0702USA00663

PATIENT
  Age: 48 Year
  Sex: Female
  Weight: 78 kg

DRUGS (5)
  1. FOSAMAX [Suspect]
     Route: 048
     Dates: start: 20021107
  2. ACTONEL [Concomitant]
     Indication: OSTEOPOROSIS
     Route: 065
     Dates: start: 20040809, end: 20050601
  3. [THERAPY UNSPECIFIED] [Concomitant]
     Route: 065
     Dates: start: 20010101, end: 20060101
  4. [THERAPY UNSPECIFIED] [Concomitant]
     Route: 065
  5. [THERAPY UNSPECIFIED] [Concomitant]
     Route: 065

REACTIONS (29)
  - ANAEMIA [None]
  - CARDIAC FAILURE CONGESTIVE [None]
  - DENTAL CARIES [None]
  - DEPRESSED MOOD [None]
  - DIARRHOEA [None]
  - ERYTHEMA [None]
  - FISTULA [None]
  - HYPERKALAEMIA [None]
  - HYPONATRAEMIA [None]
  - HYPOTENSION [None]
  - HYPOTONIC URINARY BLADDER [None]
  - JAW FRACTURE [None]
  - MALNUTRITION [None]
  - MENTAL STATUS CHANGES [None]
  - NEUTROPENIA [None]
  - OEDEMA [None]
  - OEDEMA PERIPHERAL [None]
  - OSTEOMYELITIS [None]
  - OSTEONECROSIS [None]
  - PATHOLOGICAL FRACTURE [None]
  - RENAL FAILURE ACUTE [None]
  - RIB FRACTURE [None]
  - THROMBOCYTOPENIA [None]
  - TRANSAMINASES INCREASED [None]
  - URINARY RETENTION [None]
  - URINARY TRACT INFECTION [None]
  - WOUND DEHISCENCE [None]
  - WOUND HAEMORRHAGE [None]
  - WOUND INFECTION STAPHYLOCOCCAL [None]
